FAERS Safety Report 7381936 (Version 3)
Quarter: 2012Q4

REPORT INFORMATION
  Report Type: Report from Study
  Country: AT (occurrence: AT)
  Receive Date: 20100510
  Receipt Date: 20121204
  Transmission Date: 20130627
  Serious: Yes (Hospitalization)
  Sender: FDA-Public Use
  Company Number: AT-CELGENEUS-009-21880-10042115

PATIENT
  Age: 69 Year
  Sex: Female
  Weight: 61 kg

DRUGS (11)
  1. REVLIMID [Suspect]
     Indication: CLL
     Dosage: 2.5 Milligram
     Route: 048
     Dates: start: 20100408
  2. FLUDARABINE [Suspect]
     Indication: CLL
     Route: 041
     Dates: start: 20100401
  3. RITUXIMAB [Suspect]
     Indication: CLL
     Route: 041
     Dates: start: 20100401
  4. ZYPREXA [Concomitant]
     Indication: DRUG USE FOR UNKNOWN INDICATION
     Dosage: 20 Milligram
     Route: 065
  5. THYREX [Concomitant]
     Indication: DRUG USE FOR UNKNOWN INDICATION
     Dosage: .05 Milligram
     Route: 065
  6. SERTALIN [Concomitant]
     Indication: DRUG USE FOR UNKNOWN INDICATION
     Dosage: 100 Milligram
     Route: 065
  7. MIRTABENE [Concomitant]
     Indication: DRUG USE FOR UNKNOWN INDICATION
     Dosage: 30 Milligram
     Route: 065
  8. T-ASS TICLOPIDINE [Concomitant]
     Indication: DRUG USE FOR UNKNOWN INDICATION
     Dosage: 100 Milligram
     Route: 065
  9. ZOLDEM [Concomitant]
     Indication: DRUG USE FOR UNKNOWN INDICATION
     Dosage: 2 packs
     Route: 041
  10. PERLOL [Concomitant]
     Indication: DRUG USE FOR UNKNOWN INDICATION
     Route: 065
  11. PARGEVERINE [Concomitant]
     Indication: DRUG USE FOR UNKNOWN INDICATION
     Route: 065

REACTIONS (1)
  - Tumour flare [Recovered/Resolved]
